FAERS Safety Report 4879772-8 (Version None)
Quarter: 2006Q1

REPORT INFORMATION
  Report Type: 
  Country: None (occurrence: None)
  Receive Date: 20060113
  Receipt Date: 20050322
  Transmission Date: 20060701
  Serious: No
  Sender: FDA-Public Use
  Company Number: HK-GLAXOSMITHKLINE-B0376706A

PATIENT
  Sex: Female

DRUGS (1)
  1. SEROXAT [Suspect]
     Indication: DRUG USE FOR UNKNOWN INDICATION
     Route: 048

REACTIONS (3)
  - DRUG EXPOSURE BEFORE PREGNANCY [None]
  - NORMAL DELIVERY [None]
  - PREGNANCY [None]
